FAERS Safety Report 12427133 (Version 1)
Quarter: 2016Q2

REPORT INFORMATION
  Report Type: Report from Study
  Country: US (occurrence: US)
  Receive Date: 20160601
  Receipt Date: 20160601
  Transmission Date: 20160815
  Serious: No
  Sender: FDA-Public Use
  Company Number: US-AMGEN-USASL2016069303

PATIENT

DRUGS (1)
  1. ENBREL [Suspect]
     Active Substance: ETANERCEPT
     Indication: RHEUMATOID ARTHRITIS
     Dosage: UNK UNK, UNK
     Route: 065

REACTIONS (8)
  - Malaise [Unknown]
  - Weight decreased [Unknown]
  - Stress [Unknown]
  - Feeling abnormal [Unknown]
  - Mobility decreased [Unknown]
  - Pain [Unknown]
  - Substance use [Unknown]
  - Drug ineffective [Unknown]
